FAERS Safety Report 6269642-5 (Version None)
Quarter: 2009Q3

REPORT INFORMATION
  Report Type: 
  Country: None (occurrence: None)
  Receive Date: 20090714
  Receipt Date: 20090630
  Transmission Date: 20100115
  Serious: Yes (Hospitalization)
  Sender: FDA-Public Use
  Company Number: DSA_32467_2008

PATIENT
  Sex: Female
  Weight: 204.5723 kg

DRUGS (10)
  1. ENALAPRIL MALEATE [Suspect]
     Indication: HYPERTENSION
     Dosage: (20 MG BID ORAL)
     Route: 048
     Dates: start: 19930101, end: 20080719
  2. HYDROCHLOROTHIAZIDE [Suspect]
     Indication: HYPERTENSION
     Dosage: (25 MG QD ORAL)
     Route: 048
     Dates: start: 19930101
  3. BLINDED THERAPY UK [Suspect]
     Indication: OBESITY
     Dosage: (20 MG QD ORAL)
     Route: 048
     Dates: start: 20080625, end: 20080713
  4. FELODIPINE [Suspect]
     Indication: HYPERTENSION
     Dosage: (5 MG BID ORAL), (5 MG QD ORAL)
     Route: 048
     Dates: start: 19930101, end: 20080724
  5. FELODIPINE [Suspect]
     Indication: HYPERTENSION
     Dosage: (5 MG BID ORAL), (5 MG QD ORAL)
     Route: 048
     Dates: start: 20080725
  6. ACETYLSALICYLIC ACID [Concomitant]
  7. TYLENOL (CAPLET) [Concomitant]
  8. COD-LIVER OIL [Concomitant]
  9. GERITOL /00543501/ [Concomitant]
  10. BLINDED THERAPY [Concomitant]

REACTIONS (2)
  - ANXIETY DISORDER [None]
  - DYSPNOEA [None]
